FAERS Safety Report 4500472-8 (Version None)
Quarter: 2004Q3

REPORT INFORMATION
  Report Type: 
  Country: None (occurrence: None)
  Receive Date: 20040928
  Receipt Date: 20040805
  Transmission Date: 20050211
  Serious: No
  Sender: FDA-Public Use
  Company Number: 04P-163-0269325-00

PATIENT
  Age: 56 Year
  Sex: Female
  Weight: 72.5755 kg

DRUGS (11)
  1. HUMIRA [Suspect]
     Indication: RHEUMATOID ARTHRITIS
     Dosage: 40 MG, 1 IN 2 WK, SUBCUTANEOUS
     Route: 058
     Dates: start: 20040526
  2. HYDROXYCHLOROQUINE PHOSPHATE [Concomitant]
  3. METHOTREXATE [Concomitant]
  4. OMEPRAZOLE [Concomitant]
  5. FOLIC ACID [Concomitant]
  6. FLUOXETINE HYDROCHLORIDE [Concomitant]
  7. ALENDRONATE SODIUIM [Concomitant]
  8. RETINOL [Concomitant]
  9. MULTI-VITAMINS [Concomitant]
  10. DOCUSATE SODIUM [Concomitant]
  11. PRESADONE [Concomitant]

REACTIONS (1)
  - MUSCULAR WEAKNESS [None]
